FAERS Safety Report 10244710 (Version 2)
Quarter: 2014Q3

REPORT INFORMATION
  Report Type: Report from Study
  Country: US (occurrence: US)
  Receive Date: 20140618
  Receipt Date: 20140808
  Transmission Date: 20150326
  Serious: Yes (Hospitalization, Other)
  Sender: FDA-Public Use
  Company Number: US-ACTELION-A-NJ2014-100163

PATIENT
  Age: 73 Year
  Sex: Male

DRUGS (1)
  1. TRACLEER [Suspect]
     Active Substance: BOSENTAN\BOSENTAN MONOHYDRATE
     Indication: PULMONARY ARTERIAL HYPERTENSION
     Dosage: UNK
     Route: 048
     Dates: start: 20090723

REACTIONS (9)
  - Haemoglobin decreased [Recovered/Resolved]
  - Myelodysplastic syndrome [Not Recovered/Not Resolved]
  - Anaemia [Recovered/Resolved]
  - Eating disorder [Recovered/Resolved]
  - Laceration [Recovered/Resolved]
  - Transfusion [Recovered/Resolved]
  - Staphylococcal sepsis [Recovered/Resolved]
  - Fibrosis [Recovered/Resolved]
  - Pain [Recovered/Resolved]

NARRATIVE: CASE EVENT DATE: 201402
